FAERS Safety Report 24671445 (Version 2)
Quarter: 2025Q2

REPORT INFORMATION
  Report Type: Spontaneous
  Country: US (occurrence: US)
  Receive Date: 20241127
  Receipt Date: 20250429
  Transmission Date: 20250716
  Serious: No
  Sender: PFIZER
  Company Number: US-PFIZER INC-PV202400154018

PATIENT
  Age: 82 Year
  Sex: Female
  Weight: 43.6 kg

DRUGS (4)
  1. MEKTOVI [Suspect]
     Active Substance: BINIMETINIB
     Indication: Metastatic malignant melanoma
     Dosage: 45 MG, 2X/DAY
     Route: 048
     Dates: start: 20240419, end: 20240426
  2. MEKTOVI [Suspect]
     Active Substance: BINIMETINIB
     Indication: Malignant melanoma
     Dosage: 45 MG, 2X/DAY (4D ON/3D OFF)
     Route: 048
     Dates: start: 20240430
  3. BRAFTOVI [Suspect]
     Active Substance: ENCORAFENIB
     Indication: Metastatic malignant melanoma
     Dosage: 450 MG, DAILY
     Route: 048
     Dates: start: 20240419, end: 20240426
  4. BRAFTOVI [Suspect]
     Active Substance: ENCORAFENIB
     Indication: Malignant melanoma
     Dosage: 450 MG, DAILY (4D ON/3D OFF)
     Route: 048
     Dates: start: 20240430

REACTIONS (7)
  - Bone density decreased [Unknown]
  - Dry eye [Unknown]
  - Vision blurred [Unknown]
  - Ocular toxicity [Unknown]
  - Fatigue [Unknown]
  - Off label use [Unknown]
  - Product use issue [Unknown]

NARRATIVE: CASE EVENT DATE: 20240401
